FAERS Safety Report 4368964-2 (Version None)
Quarter: 2004Q2

REPORT INFORMATION
  Report Type: 
  Country: None (occurrence: None)
  Receive Date: 20040527
  Receipt Date: 20040510
  Transmission Date: 20050107
  Serious: Yes (Hospitalization, Other)
  Sender: FDA-Public Use
  Company Number: USA040567159

PATIENT
  Age: 54 Year
  Sex: Female
  Weight: 84 kg

DRUGS (16)
  1. FORTEO [Suspect]
     Indication: OSTEOPOROSIS
     Dates: start: 20040301
  2. CENTRUM [Concomitant]
  3. OSTEO PLUS [Concomitant]
  4. K-DUR 10 [Concomitant]
  5. DEPAKOTE [Concomitant]
  6. VITAMIN C [Concomitant]
  7. PREDNISONE [Concomitant]
  8. LASIX [Concomitant]
  9. HIPREX (METHANAMINE HIPPURATE) [Concomitant]
  10. PRILOSEC [Concomitant]
  11. INDERAL [Concomitant]
  12. OXYCONTIN [Concomitant]
  13. DETROL LA (TOLTERODINE L-TARTRATE) [Concomitant]
  14. SOMA [Concomitant]
  15. SENNA [Concomitant]
  16. FLOMAX [Concomitant]

REACTIONS (5)
  - CELLULITIS [None]
  - DEEP VEIN THROMBOSIS [None]
  - PHARMACEUTICAL PRODUCT COMPLAINT [None]
  - SPINAL OPERATION [None]
  - WEIGHT DECREASED [None]
